FAERS Safety Report 17834104 (Version 1)
Quarter: 2020Q2

REPORT INFORMATION
  Report Type: Report from Study
  Country: ZA (occurrence: ZA)
  Receive Date: 20200528
  Receipt Date: 20200528
  Transmission Date: 20200714
  Serious: Yes (Other)
  Sender: FDA-Public Use
  Company Number: ZA-ROCHE-2608732

PATIENT
  Age: 82 Year
  Sex: Male

DRUGS (2)
  1. AVASTIN [Concomitant]
     Active Substance: BEVACIZUMAB
     Indication: PRODUCT USED FOR UNKNOWN INDICATION
     Route: 065
  2. LUCENTIS [Suspect]
     Active Substance: RANIBIZUMAB
     Indication: AGE-RELATED MACULAR DEGENERATION
     Route: 047
     Dates: start: 20190311

REACTIONS (2)
  - Visual impairment [Unknown]
  - Macular oedema [Unknown]

NARRATIVE: CASE EVENT DATE: 20200514
